FAERS Safety Report 10143997 (Version 1)
Quarter: 2014Q2

REPORT INFORMATION
  Report Type: Other
  Country: US (occurrence: US)
  Receive Date: 20140430
  Receipt Date: 20140430
  Transmission Date: 20141212
  Serious: Yes (Life-Threatening)
  Sender: FDA-Public Use
  Company Number: US-BRISTOL-MYERS SQUIBB COMPANY-20681862

PATIENT
  Age: 59 Year
  Sex: Male

DRUGS (4)
  1. METFORMIN HCL TABS 500MG [Suspect]
     Dosage: 1 DF: 60 NUMBERS, TOTAL 30 GRAM
  2. LISINOPRIL [Suspect]
     Dosage: 30 TABS, TOTAL 300MG
  3. AMLODIPINE [Suspect]
     Dosage: 30 TABS, TOTAL 300MG
  4. SIMVASTATIN TAB [Suspect]

REACTIONS (6)
  - Suicide attempt [Unknown]
  - Intentional overdose [Unknown]
  - Cardiogenic shock [Recovering/Resolving]
  - Renal failure acute [Recovering/Resolving]
  - Lactic acidosis [Recovering/Resolving]
  - Hypoglycaemia [Recovering/Resolving]
